FAERS Safety Report 10354044 (Version 1)
Quarter: 2014Q3

REPORT INFORMATION
  Report Type: Spontaneous
  Country: US (occurrence: US)
  Receive Date: 20140731
  Receipt Date: 20140731
  Transmission Date: 20150326
  Serious: No
  Sender: FDA-Public Use
  Company Number: US-DRREDDYS-USA/USA/13/0032305

PATIENT
  Age: 22 Year
  Sex: Female
  Weight: 68.03 kg

DRUGS (1)
  1. OMEPRAZOLE MAGNESIUM DELAYED RELEASE OTC [Suspect]
     Active Substance: OMEPRAZOLE MAGNESIUM
     Indication: GASTROOESOPHAGEAL REFLUX DISEASE
     Dosage: 20.6 MG DAILY
     Route: 048
     Dates: start: 20130630

REACTIONS (2)
  - Product quality issue [Unknown]
  - Drug ineffective [Unknown]
